FAERS Safety Report 4695549-0 (Version None)
Quarter: 2005Q2

REPORT INFORMATION
  Report Type: 
  Country: None (occurrence: None)
  Receive Date: 20050620
  Receipt Date: 20050620
  Transmission Date: 20051028
  Serious: Yes (Other)
  Sender: FDA-Public Use
  Company Number: None

PATIENT
  Sex: Female
  Weight: 72.5755 kg

DRUGS (1)
  1. SYNVISC 2 ML GENZYME [Suspect]
     Indication: ARTHRITIS
     Dosage: 2 ML INTRA-ANI
     Dates: start: 20050617, end: 20050617

REACTIONS (1)
  - PHARMACEUTICAL PRODUCT COMPLAINT [None]
